FAERS Safety Report 5486695-2 (Version None)
Quarter: 2007Q4

REPORT INFORMATION
  Report Type: 
  Country: None (occurrence: None)
  Receive Date: 20071016
  Receipt Date: 20071004
  Transmission Date: 20080405
  Serious: Yes (Other)
  Sender: FDA-Public Use
  Company Number: US-BAYER-200713656BWH

PATIENT
  Sex: Male

DRUGS (8)
  1. AVELOX [Suspect]
     Indication: SINUSITIS
     Route: 048
     Dates: start: 20071001
  2. VIDEX EC [Concomitant]
  3. KALETRA [Concomitant]
  4. ZIAGEN [Concomitant]
  5. MS CONTIN [Concomitant]
  6. ACYCLOVIR [Concomitant]
  7. MAXALT [Concomitant]
  8. PREDNISONE [Concomitant]

REACTIONS (5)
  - EYE DISORDER [None]
  - PHOTOPSIA [None]
  - RETINAL DETACHMENT [None]
  - VISION BLURRED [None]
  - VISUAL DISTURBANCE [None]
